FAERS Safety Report 7956589-9 (Version None)
Quarter: 2011Q4

REPORT INFORMATION
  Report Type: 
  Country: None (occurrence: None)
  Receive Date: 20111205
  Receipt Date: 20111128
  Transmission Date: 20120403
  Serious: Yes (Hospitalization)
  Sender: FDA-Public Use
  Company Number: PHHY2011VE105373

PATIENT
  Sex: Female

DRUGS (9)
  1. ZOLEDRONOC ACID [Suspect]
     Dosage: 5 MG, YEARLY
     Route: 042
     Dates: start: 20091001
  2. ZOLEDRONOC ACID [Suspect]
     Dosage: 5 MG, YEARLY
     Route: 042
     Dates: start: 20101001
  3. RACOL [Concomitant]
     Dosage: 20 MG, UNK
  4. ZOLEDRONOC ACID [Suspect]
     Indication: OSTEOPOROSIS
     Dosage: 5 MG, YEARLY
     Route: 042
     Dates: start: 20081001
  5. ZOLEDRONOC ACID [Suspect]
     Dosage: 5 MG, YEARLY
     Route: 042
     Dates: start: 20111101
  6. PLAVIX [Concomitant]
     Dosage: 75 MG, UNK
     Dates: start: 20090101
  7. VINPERAZ [Concomitant]
     Indication: HYPERTENSION
     Dosage: 4/1.25MG
     Dates: start: 20101201
  8. LYRICA [Concomitant]
     Dosage: 75 MG, UNK
     Dates: start: 20111101
  9. TRAMADOL HCL [Concomitant]
     Indication: PAIN
     Dosage: 37.5 MG, UNK

REACTIONS (1)
  - URINARY TRACT INFECTION [None]
